FAERS Safety Report 19097350 (Version 1)
Quarter: 2021Q2

REPORT INFORMATION
  Report Type: Spontaneous
  Country: GB (occurrence: GB)
  Receive Date: 20210406
  Receipt Date: 20210406
  Transmission Date: 20210717
  Serious: Yes (Death)
  Sender: FDA-Public Use
  Company Number: GB-BAYER-2021-109251

PATIENT
  Sex: Female

DRUGS (1)
  1. APROTININ [Suspect]
     Active Substance: APROTININ
     Indication: PRODUCT USED FOR UNKNOWN INDICATION
     Dosage: 700 MILLILITRE EVERY 1 DAY(S) LOADING DOSE 2 MILLION KIU PUMP PRIMING DOSE 2 MILLION KIU
     Route: 065

REACTIONS (1)
  - Adverse event [Fatal]
